FAERS Safety Report 6411266-0 (Version None)
Quarter: 2009Q4

REPORT INFORMATION
  Report Type: 
  Country: None (occurrence: None)
  Receive Date: 20091020
  Receipt Date: 20081012
  Transmission Date: 20100525
  Serious: Yes (Other)
  Sender: FDA-Public Use
  Company Number: JHP200900322

PATIENT
  Age: 25 Year
  Sex: Male

DRUGS (1)
  1. KETALAR [Suspect]
     Indication: DRUG ABUSE

REACTIONS (4)
  - CYSTITIS ULCERATIVE [None]
  - HYDRONEPHROSIS [None]
  - HYDROURETER [None]
  - MICROCYTIC ANAEMIA [None]
